FAERS Safety Report 16135492 (Version 1)
Quarter: 2019Q1

REPORT INFORMATION
  Report Type: Spontaneous
  Country: US (occurrence: US)
  Receive Date: 20190329
  Receipt Date: 20190329
  Transmission Date: 20190418
  Serious: No
  Sender: FDA-Public Use
  Company Number: US-SUNOVION-2019SUN001191

PATIENT
  Sex: Female

DRUGS (1)
  1. LATUDA [Suspect]
     Active Substance: LURASIDONE HYDROCHLORIDE
     Dosage: 30 MG (20 MG+1/2TABLET 20 MG)
     Route: 048

REACTIONS (3)
  - Abdominal pain upper [Unknown]
  - Dizziness [Unknown]
  - Off label use [Unknown]
